FAERS Safety Report 5576346-0 (Version None)
Quarter: 2007Q4

REPORT INFORMATION
  Report Type: 
  Country: None (occurrence: None)
  Receive Date: 20071228
  Receipt Date: 20071217
  Transmission Date: 20080405
  Serious: Yes (Other)
  Sender: FDA-Public Use
  Company Number: ES-ROCHE-537392

PATIENT
  Age: 70 Year
  Sex: Female

DRUGS (3)
  1. XELODA [Suspect]
     Indication: DRUG USE FOR UNKNOWN INDICATION
     Dosage: FORM: FILM COATED TABLETS
     Route: 048
     Dates: start: 20060102, end: 20060306
  2. XELODA [Suspect]
     Route: 048
     Dates: start: 20060306, end: 20060327
  3. OXALIPLATINE [Concomitant]
     Dates: start: 20060102, end: 20060102

REACTIONS (1)
  - ERYTHRODERMIC PSORIASIS [None]
